FAERS Safety Report 9959204 (Version 1)
Quarter: 2014Q1

REPORT INFORMATION
  Report Type: Spontaneous
  Country: US (occurrence: US)
  Receive Date: 20140305
  Receipt Date: 20140305
  Transmission Date: 20141002
  Serious: No
  Sender: FDA-Public Use
  Company Number: US-ABBVIE-13P-163-1102268-00

PATIENT
  Age: 67 Year
  Sex: Female
  Weight: 81.72 kg

DRUGS (10)
  1. HUMIRA [Suspect]
     Indication: PSORIATIC ARTHROPATHY
     Route: 058
     Dates: start: 20110311
  2. HUMIRA [Suspect]
     Indication: RHEUMATOID ARTHRITIS
  3. ARMOUR THYROID [Concomitant]
     Indication: THYROIDECTOMY
  4. CRESTOR [Concomitant]
     Indication: BLOOD CHOLESTEROL INCREASED
  5. OMEPRAZOLE [Concomitant]
     Indication: GASTROOESOPHAGEAL REFLUX DISEASE
  6. ASPIRIN [Concomitant]
     Indication: PRODUCT USED FOR UNKNOWN INDICATION
  7. MVI [Concomitant]
     Indication: VITAMIN SUPPLEMENTATION
  8. OMEGA 3 [Concomitant]
     Indication: SUPPLEMENTATION THERAPY
  9. CO Q 10 [Concomitant]
     Indication: SUPPLEMENTATION THERAPY
  10. DGL [Concomitant]
     Indication: SUPPLEMENTATION THERAPY

REACTIONS (5)
  - Throat irritation [Not Recovered/Not Resolved]
  - Nasopharyngitis [Not Recovered/Not Resolved]
  - Sneezing [Not Recovered/Not Resolved]
  - Cough [Not Recovered/Not Resolved]
  - Nasal congestion [Not Recovered/Not Resolved]
